FAERS Safety Report 5255029-0 (Version None)
Quarter: 2007Q1

REPORT INFORMATION
  Report Type: 
  Country: None (occurrence: None)
  Receive Date: 20070305
  Receipt Date: 20070220
  Transmission Date: 20070707
  Serious: Yes (Hospitalization)
  Sender: FDA-Public Use
  Company Number: US-AMGEN-STX211978

PATIENT
  Sex: Female

DRUGS (1)
  1. ENBREL [Suspect]
     Indication: RHEUMATOID ARTHRITIS
     Route: 058
     Dates: start: 20000202, end: 20060815

REACTIONS (8)
  - CARDIAC FAILURE CONGESTIVE [None]
  - CELLULITIS [None]
  - DEHYDRATION [None]
  - GROIN PAIN [None]
  - PAIN IN EXTREMITY [None]
  - RENAL FAILURE [None]
  - THROMBOSIS [None]
  - URINARY TRACT INFECTION [None]
